FAERS Safety Report 7472489-5 (Version None)
Quarter: 2011Q2

REPORT INFORMATION
  Report Type: 
  Country: None (occurrence: None)
  Receive Date: 20110511
  Receipt Date: 20110404
  Transmission Date: 20111010
  Serious: Yes (Hospitalization, Other)
  Sender: FDA-Public Use
  Company Number: US-BAYER-201033627NA

PATIENT
  Age: 19 Year
  Sex: Female
  Weight: 78 kg

DRUGS (20)
  1. ZOFRAN [Concomitant]
     Dosage: 4 MG, PRN
     Route: 042
     Dates: start: 20071001
  2. PROAIR HFA [Concomitant]
  3. ORACIF [Concomitant]
     Dosage: 30 MG, UNK
     Route: 042
  4. LIDOCAINE [Concomitant]
     Dosage: UNK
     Route: 042
     Dates: start: 20071001
  5. REGLAN [Concomitant]
     Dosage: 10 MG, UNK
     Route: 042
     Dates: start: 20070829
  6. FENTANYL [Concomitant]
     Dosage: UNK
     Route: 042
     Dates: start: 20071001
  7. AUGMENTIN [Concomitant]
     Dosage: 500 MG, TID
     Route: 048
     Dates: start: 20070730
  8. PITOCIN [Concomitant]
     Dosage: 20 U, UNK
     Route: 042
     Dates: start: 20070829
  9. MORPHINE [Concomitant]
     Dosage: UNK UNK, PRN
     Route: 042
     Dates: start: 20071001
  10. YASMIN [Suspect]
     Indication: ACNE
     Dosage: UNK
     Dates: start: 20061001, end: 20080901
  11. YAZ [Suspect]
     Dosage: UNK
     Route: 048
     Dates: start: 20061001, end: 20080901
  12. DROSPIRENONE AND ETHINYL ESTRADIOL [Suspect]
     Dosage: UNK
     Dates: start: 20061001, end: 20080901
  13. MAGNESIUM SULFATE [Concomitant]
     Dosage: UNK
     Route: 042
     Dates: start: 20070829, end: 20070831
  14. PERCOCET [Concomitant]
     Dosage: UNK UNK, PRN
     Route: 048
     Dates: start: 20071001
  15. ZANTAC [Concomitant]
     Dosage: 150 MG, PRN
     Route: 048
  16. PROCARDIA [Concomitant]
     Dosage: 20 MG, UNK
     Route: 048
     Dates: start: 20070803
  17. TORADOL [Concomitant]
     Dosage: 30 MG, UNK
     Route: 042
     Dates: start: 20070930
  18. PROPOFOL [Concomitant]
     Dosage: UNK
     Route: 042
     Dates: start: 20071001
  19. PRENATAL VITAMINS [VIT C,B5,B12,D2,B3,B6,RETINOL PALMIT,B2,B1 MONONITR [Concomitant]
     Dosage: UNK UNK, QD
     Route: 048
  20. PROCARDIA [Concomitant]
     Dosage: 30 MG, UNK
     Route: 048
     Dates: start: 20070830, end: 20070831

REACTIONS (3)
  - CHOLELITHIASIS [None]
  - PSYCHIATRIC DECOMPENSATION [None]
  - GALLBLADDER DISORDER [None]
